FAERS Safety Report 7312595-9 (Version None)
Quarter: 2011Q1

REPORT INFORMATION
  Report Type: 
  Country: None (occurrence: None)
  Receive Date: 20110224
  Receipt Date: 20110214
  Transmission Date: 20110831
  Serious: Yes (Disabling)
  Sender: FDA-Public Use
  Company Number: BR-BAYER-2011-014021

PATIENT
  Sex: Female
  Weight: 58 kg

DRUGS (3)
  1. BROMOPRIDE [Concomitant]
     Indication: GASTROOESOPHAGEAL REFLUX DISEASE
     Dosage: 100 MG, BID
     Route: 048
     Dates: start: 20101201
  2. LEVOTHYROXINE SODIUM [Concomitant]
     Indication: HYPOTHYROIDISM
     Dosage: 100 MG, OM
     Route: 048
     Dates: start: 19910101
  3. AVELOX [Suspect]

REACTIONS (7)
  - DRY MOUTH [None]
  - DYSGEUSIA [None]
  - MUSCLE RIGIDITY [None]
  - MALAISE [None]
  - TREMOR [None]
  - DYSGRAPHIA [None]
  - AGRAPHIA [None]
